FAERS Safety Report 17826627 (Version 3)
Quarter: 2020Q2

REPORT INFORMATION
  Report Type: Spontaneous
  Country: US (occurrence: US)
  Receive Date: 20200526
  Receipt Date: 20200629
  Transmission Date: 20200714
  Serious: Yes (Hospitalization, Other)
  Sender: FDA-Public Use
  Company Number: US-ACTELION-A-NJ2020-205497

PATIENT
  Sex: Female

DRUGS (1)
  1. OPSUMIT [Suspect]
     Active Substance: MACITENTAN
     Indication: PULMONARY ARTERIAL HYPERTENSION
     Dosage: 10 MG, QD
     Route: 048
     Dates: start: 20180202

REACTIONS (6)
  - Neoplasm malignant [Unknown]
  - Urinary tract infection [Recovered/Resolved]
  - Amnesia [Unknown]
  - Spinal fracture [Unknown]
  - Fall [Unknown]
  - Upper limb fracture [Unknown]
